FAERS Safety Report 14693398 (Version 1)
Quarter: 2018Q1

REPORT INFORMATION
  Report Type: Spontaneous
  Country: US (occurrence: US)
  Receive Date: 20180329
  Receipt Date: 20180329
  Transmission Date: 20180509
  Serious: Yes (Other)
  Sender: FDA-Public Use
  Company Number: US-JNJFOC-20180335028

PATIENT
  Age: 58 Year
  Sex: Male

DRUGS (1)
  1. INVOKANA [Suspect]
     Active Substance: CANAGLIFLOZIN
     Indication: TYPE 2 DIABETES MELLITUS
     Dosage: 100/300MG
     Route: 048
     Dates: start: 20150423, end: 20170724

REACTIONS (2)
  - Skin ulcer [Unknown]
  - Amputation [Unknown]

NARRATIVE: CASE EVENT DATE: 20150612
